FAERS Safety Report 16400482 (Version 3)
Quarter: 2019Q2

REPORT INFORMATION
  Report Type: Spontaneous
  Country: DE (occurrence: DE)
  Receive Date: 20190606
  Receipt Date: 20190612
  Transmission Date: 20190711
  Serious: Yes (Life-Threatening, Hospitalization, Other)
  Sender: FDA-Public Use
  Company Number: DE-JNJFOC-20190602210

PATIENT
  Age: 67 Year
  Sex: Female
  Weight: 65 kg

DRUGS (1)
  1. ITRACONAZOLE. [Suspect]
     Active Substance: ITRACONAZOLE
     Indication: ONYCHOMYCOSIS
     Dosage: 3 COURSES, EACH WITH 1 WEEK OF ORAL ITRACONAZOLE (FOLLOWED BY A 3-WEEK INTERVAL WITHOUT DRUG)
     Route: 048
     Dates: start: 201903

REACTIONS (5)
  - Hepatic failure [Recovering/Resolving]
  - Jaundice [Unknown]
  - Ammonia increased [Unknown]
  - Drug-induced liver injury [Recovering/Resolving]
  - Hepatic enzyme increased [Unknown]

NARRATIVE: CASE EVENT DATE: 20190510
